FAERS Safety Report 4643313-0 (Version None)
Quarter: 2005Q2

REPORT INFORMATION
  Report Type: 
  Country: None (occurrence: None)
  Receive Date: 20050421
  Receipt Date: 20050103
  Transmission Date: 20051028
  Serious: Yes (Other)
  Sender: FDA-Public Use
  Company Number: 2005025848

PATIENT
  Sex: Female
  Weight: 88.4514 kg

DRUGS (3)
  1. BEXTRA [Suspect]
     Indication: TENDON INJURY
     Dosage: 10 MG (10 MG, 1 IN 1 D), ORAL
     Route: 048
     Dates: start: 20020101, end: 20030701
  2. TRIAMTERENE (TRIAMTERENE) [Concomitant]
  3. THYROID TAB [Concomitant]

REACTIONS (4)
  - CONTUSION [None]
  - EYE HAEMORRHAGE [None]
  - GINGIVAL BLEEDING [None]
  - MENISCUS LESION [None]
